FAERS Safety Report 7415048-2 (Version None)
Quarter: 2011Q2

REPORT INFORMATION
  Report Type: 
  Country: None (occurrence: None)
  Receive Date: 20110414
  Receipt Date: 20110404
  Transmission Date: 20111010
  Serious: Yes (Other)
  Sender: FDA-Public Use
  Company Number: DK-ROCHE-768899

PATIENT

DRUGS (10)
  1. OXALIPLATIN [Suspect]
     Dosage: FREQUENCY: ON DAY 1 AND 14 OF 28 DAYS CYCLE.  LEVEL 3A, 4, 5. PHASE I.
     Route: 042
  2. GEMCITABINE [Suspect]
     Dosage: PHASE II.
     Route: 042
  3. CAPECITABINE [Suspect]
     Dosage: PHASE II.
     Route: 048
  4. GEMCITABINE [Suspect]
     Dosage: INF.RATE: 10 MG/M2/MIN.FREQ: ON DAY 1 + 14 OF 28 DAYS CYCLE.LEVEL 2, 3, 3A + 4.PHASE I.
     Route: 042
  5. OXALIPLATIN [Suspect]
     Dosage: PHASE II.
     Route: 042
  6. CAPECITABINE [Suspect]
     Dosage: ON DAY 1-7 AND DAY 14-21 OF 28 DAYS CYCLE. LEVEL 3, 4, AND 5. PHASE I.
     Route: 048
  7. GEMCITABINE [Suspect]
     Dosage: INF. RATE:10 MG/M2/MIN.FREQ: ON DAY 1 + 14 OF 28 DAYS CYCLE.LEVEL 5. PHASE I.
     Route: 042
  8. CAPECITABINE [Suspect]
     Dosage: ON DAY 1-7 AND DAY 14-21 OF 28 DAYS CYCLE. LEVEL 1, 2 AND 3A. PHASE I.
     Route: 048
  9. GEMCITABINE [Suspect]
     Dosage: INF.RATE:10 MG/M2/MIN. FREQ:ON DAY 1 + 14 OF 28 DAYS CYCLE.  LEVEL 1.FORM: INFUSION. PHASE I
     Route: 042
  10. OXALIPLATIN [Suspect]
     Dosage: FREQUENCY: ON DAY 1 AND 14 OF 28 DAYS CYCLE.  LEVEL 1, 2, 3. FORM: INFUSION. PHASE I.
     Route: 042

REACTIONS (13)
  - EMBOLISM ARTERIAL [None]
  - DIARRHOEA [None]
  - FEBRILE NEUTROPENIA [None]
  - VOMITING [None]
  - DIABETES MELLITUS [None]
  - NEUROPATHY PERIPHERAL [None]
  - PULMONARY EMBOLISM [None]
  - THROMBOCYTOPENIA [None]
  - NEUTROPENIA [None]
  - PALMAR-PLANTAR ERYTHRODYSAESTHESIA SYNDROME [None]
  - NAUSEA [None]
  - FATIGUE [None]
  - INFECTION [None]
